FAERS Safety Report 5010013-7 (Version None)
Quarter: 2006Q2

REPORT INFORMATION
  Report Type: 
  Country: None (occurrence: None)
  Receive Date: 20060511
  Receipt Date: 20060427
  Transmission Date: 20061013
  Serious: Yes (Other)
  Sender: FDA-Public Use
  Company Number: 2006BH008897

PATIENT
  Sex: Male

DRUGS (8)
  1. HEMOFIL [Suspect]
     Indication: FACTOR VIII DEFICIENCY
  2. FACTOR VIII (ANTIHAEMOPHILIC FACTOR) BAYER (NO PREF. NAME) [Suspect]
     Indication: FACTOR VIII DEFICIENCY
  3. HEMOFIL [Suspect]
     Indication: FACTOR VIII DEFICIENCY
  4. HEMOFIL [Suspect]
     Indication: FACTOR VIII DEFICIENCY
     Dates: end: 19850101
  5. HEMOFIL [Suspect]
     Indication: FACTOR VIII DEFICIENCY
     Dates: end: 19870101
  6. FACTOR VIII (ANTIHAEMOPHILIC FACTOR) ARMOUR (NO PREF. NAME) [Suspect]
     Indication: FACTOR VIII DEFICIENCY
  7. FACTOR VIII (ANTIHAEMOPHILIC FACTOR) NHS (NO PREF. NAME) [Suspect]
     Indication: FACTOR VIII DEFICIENCY
     Dates: end: 19890101
  8. ANTIHEMOPHILIC FACTOR (HUMAN) [Concomitant]

REACTIONS (2)
  - HEPATITIS C [None]
  - PHARMACEUTICAL PRODUCT COMPLAINT [None]
